FAERS Safety Report 4277766-7 (Version None)
Quarter: 2004Q1

REPORT INFORMATION
  Report Type: 
  Country: None (occurrence: None)
  Receive Date: 20040121
  Receipt Date: 20040109
  Transmission Date: 20041129
  Serious: Yes (Disabling)
  Sender: FDA-Public Use
  Company Number: 2004002251

PATIENT
  Age: 57 Year
  Sex: Female

DRUGS (4)
  1. ATORVASTATIN (ATORVASTATIN) [Suspect]
     Indication: HYPERCHOLESTEROLAEMIA
     Dosage: 10 MG (DAILY)
     Dates: start: 19990601, end: 20030603
  2. FRUMIL (FUROSEMIDE, AMILORIDE HYDROCHLORIDE) [Concomitant]
  3. PARAMOL-118 (PARACETAMOL, DIHYDROCOCDEINE BITARTRATE) [Concomitant]
  4. CONJUGATED ESTROGENS [Concomitant]

REACTIONS (1)
  - NEUROPATHY PERIPHERAL [None]
